FAERS Safety Report 7233104-9 (Version None)
Quarter: 2011Q1

REPORT INFORMATION
  Report Type: 
  Country: None (occurrence: None)
  Receive Date: 20110119
  Receipt Date: 20110118
  Transmission Date: 20110831
  Serious: Yes (Other)
  Sender: FDA-Public Use
  Company Number: US-ABBOTT-10P-163-0690682-00

PATIENT
  Sex: Female
  Weight: 83.99 kg

DRUGS (11)
  1. HUMIRA [Suspect]
     Dates: start: 20071001, end: 20100201
  2. WELLBUTRIN [Concomitant]
     Indication: DEPRESSION
  3. ATENOLOL [Concomitant]
     Indication: HYPERTENSION
     Dates: start: 20020101
  4. DEXILANT [Concomitant]
     Indication: GASTROOESOPHAGEAL REFLUX DISEASE
     Dates: start: 20091201
  5. SYNTHROID [Concomitant]
     Indication: HYPOTHYROIDISM
  6. ZETIA [Concomitant]
     Indication: BLOOD CHOLESTEROL INCREASED
     Dates: start: 20080801
  7. HUMIRA [Suspect]
     Dates: start: 20100501
  8. HYDROCHLOROTHIAZIDE [Concomitant]
     Indication: HYPERTENSION
     Dates: start: 20030116
  9. CELEBREX [Concomitant]
     Indication: RHEUMATOID ARTHRITIS
     Dates: start: 19990701
  10. HUMIRA [Suspect]
     Indication: RHEUMATOID ARTHRITIS
     Dates: start: 20040122, end: 20080201
  11. EFFEXOR [Concomitant]
     Indication: DEPRESSION

REACTIONS (19)
  - SKIN ODOUR ABNORMAL [None]
  - INSOMNIA [None]
  - ABDOMINAL PAIN UPPER [None]
  - UPPER RESPIRATORY TRACT INFECTION [None]
  - MUSCLE TWITCHING [None]
  - ERYTHEMA [None]
  - GASTROOESOPHAGEAL REFLUX DISEASE [None]
  - NAUSEA [None]
  - CHOLELITHIASIS [None]
  - PAIN [None]
  - ABDOMINAL PAIN [None]
  - ARTHRALGIA [None]
  - GAIT DISTURBANCE [None]
  - FUNGAL INFECTION [None]
  - SKIN IRRITATION [None]
  - ARTHRITIS [None]
  - BLOOD CHOLESTEROL INCREASED [None]
  - MALAISE [None]
  - ACQUIRED OESOPHAGEAL WEB [None]
